FAERS Safety Report 25016146 (Version 3)
Quarter: 2025Q2

REPORT INFORMATION
  Report Type: Spontaneous
  Country: US (occurrence: US)
  Receive Date: 20250227
  Receipt Date: 20250404
  Transmission Date: 20250716
  Serious: Yes (Death, Other)
  Sender: MSN LABORATORIES
  Company Number: US-MSNLABS-2025MSNSPO00441

PATIENT

DRUGS (4)
  1. ABIRATERONE ACETATE [Suspect]
     Active Substance: ABIRATERONE ACETATE
     Indication: Neoplasm malignant
     Dosage: 4 PILLS PER DAY WHICH IS 1000MG PER DAY (4 TABLETS OF 250MG)
     Route: 048
     Dates: start: 20250102, end: 20250113
  2. ENTRESTO [Concomitant]
     Active Substance: SACUBITRIL\VALSARTAN
     Indication: Product used for unknown indication
     Route: 065
  3. SPIRONOLACTONE [Concomitant]
     Active Substance: SPIRONOLACTONE
     Indication: Product used for unknown indication
     Route: 065
  4. TAMSULOSIN [Concomitant]
     Active Substance: TAMSULOSIN
     Route: 065

REACTIONS (14)
  - Myocardial infarction [Fatal]
  - General physical health deterioration [Unknown]
  - Decreased appetite [Unknown]
  - Fatigue [Unknown]
  - Gait inability [Unknown]
  - Pain in extremity [Unknown]
  - Oral discomfort [Unknown]
  - Tongue discomfort [Unknown]
  - Stiff tongue [Unknown]
  - Product use complaint [Unknown]
  - Product size issue [Unknown]
  - Cardiac discomfort [Unknown]
  - Eating disorder [Unknown]
  - Throat irritation [Unknown]
